FAERS Safety Report 23470225 (Version 1)
Quarter: 2024Q1

REPORT INFORMATION
  Report Type: Spontaneous
  Country: US (occurrence: US)
  Receive Date: 20240202
  Receipt Date: 20240202
  Transmission Date: 20240409
  Serious: No
  Sender: FDA-Public Use
  Company Number: US-TORRENT-00013392

PATIENT
  Age: 62 Year
  Sex: Male

DRUGS (1)
  1. DICHLORPHENAMIDE [Suspect]
     Active Substance: DICHLORPHENAMIDE
     Indication: Familial periodic paralysis
     Dosage: 1 TABLET, 2X/DAY,
     Route: 048

REACTIONS (2)
  - Paraesthesia oral [Recovered/Resolved]
  - Lip swelling [Recovered/Resolved]
